FAERS Safety Report 21363903 (Version 2)
Quarter: 2024Q1

REPORT INFORMATION
  Report Type: Report from Study
  Country: US (occurrence: US)
  Receive Date: 20220922
  Receipt Date: 20240307
  Transmission Date: 20240409
  Serious: Yes (Other)
  Sender: FDA-Public Use
  Company Number: US-ABBVIE-4127188

PATIENT
  Sex: Male

DRUGS (1)
  1. IMBRUVICA [Suspect]
     Active Substance: IBRUTINIB
     Indication: Product used for unknown indication
     Route: 048

REACTIONS (6)
  - Atrial septal defect [Unknown]
  - Neoplasm [Unknown]
  - Cardiac disorder [Recovered/Resolved]
  - Anaemia [Unknown]
  - Atrial fibrillation [Unknown]
  - Constipation [Unknown]
